FAERS Safety Report 7978978-9 (Version None)
Quarter: 2011Q4

REPORT INFORMATION
  Report Type: 
  Country: None (occurrence: None)
  Receive Date: 20111130
  Receipt Date: 20111115
  Transmission Date: 20120403
  Serious: Yes (Death, Life-Threatening)
  Sender: FDA-Public Use
  Company Number: 2011MA016488

PATIENT
  Age: 75 Year
  Sex: Female

DRUGS (22)
  1. LEVOXYL [Concomitant]
  2. TRAZODONE HCL [Concomitant]
  3. LEVOPHED [Concomitant]
  4. VERSED [Concomitant]
  5. ATROPINE [Concomitant]
  6. EPINEPHRINE [Concomitant]
  7. SODIUM BICARBONATE [Concomitant]
  8. FLECAINIDE ACETATE [Concomitant]
  9. SIMVASTATIN [Concomitant]
  10. AMIODARONE HCL [Concomitant]
  11. ADVAIR DISKUS 100/50 [Concomitant]
  12. COMBIVENT [Concomitant]
  13. COUMADIN [Concomitant]
  14. PREDNISONE [Concomitant]
  15. SODIUM CHLORIDE [Concomitant]
  16. GLUCAGON [Concomitant]
  17. ATENOLOL [Concomitant]
  18. DILTIAZEM HCL [Concomitant]
  19. PROPAFENONE HCL [Concomitant]
  20. CALCIUM CARBONATE [Concomitant]
  21. DIGOXIN [Suspect]
     Indication: ATRIAL FIBRILLATION
     Dosage: 0.125 MG;QD;PO
     Route: 048
     Dates: start: 20080317, end: 20080401
  22. CHOLESTYRAMINE [Concomitant]

REACTIONS (10)
  - HEART RATE DECREASED [None]
  - UNRESPONSIVE TO STIMULI [None]
  - RESPIRATORY RATE DECREASED [None]
  - DEPRESSION [None]
  - CARDIAC ARREST [None]
  - ATRIAL FIBRILLATION [None]
  - VENTRICULAR TACHYCARDIA [None]
  - BUNDLE BRANCH BLOCK RIGHT [None]
  - DEPRESSED LEVEL OF CONSCIOUSNESS [None]
  - BRADYCARDIA [None]
